FAERS Safety Report 5985422-X (Version None)
Quarter: 2008Q4

REPORT INFORMATION
  Report Type: 
  Country: None (occurrence: None)
  Receive Date: 20081208
  Receipt Date: 20080320
  Transmission Date: 20090506
  Serious: No
  Sender: FDA-Public Use
  Company Number: US-AMGEN-KDL270737

PATIENT
  Sex: Female

DRUGS (1)
  1. ENBREL [Suspect]
     Indication: RHEUMATOID ARTHRITIS
     Route: 058
     Dates: start: 20070201

REACTIONS (7)
  - ERYTHEMA [None]
  - INJECTION SITE IRRITATION [None]
  - JOINT SWELLING [None]
  - OEDEMA PERIPHERAL [None]
  - STRESS [None]
  - TOOTHACHE [None]
  - WEIGHT DECREASED [None]
